FAERS Safety Report 20211618 (Version 1)
Quarter: 2021Q4

REPORT INFORMATION
  Report Type: Spontaneous
  Country: US (occurrence: None)
  Receive Date: 20211220
  Receipt Date: 20211220
  Transmission Date: 20220303
  Serious: No
  Sender: FDA-Public Use
  Company Number: None

PATIENT
  Age: 74 Year
  Weight: 34.16 kg

DRUGS (2)
  1. DARZALEX [Suspect]
     Active Substance: DARATUMUMAB
     Indication: Plasma cell myeloma
     Dosage: FREQUENCY : TWICE A DAY;?
     Route: 042
     Dates: start: 20211214, end: 20211214
  2. DARZALEX [Suspect]
     Active Substance: DARATUMUMAB

REACTIONS (5)
  - Cough [None]
  - Infusion related reaction [None]
  - Throat irritation [None]
  - Wheezing [None]
  - Dyspnoea [None]

NARRATIVE: CASE EVENT DATE: 20211214
